FAERS Safety Report 4867668-7 (Version None)
Quarter: 2005Q4

REPORT INFORMATION
  Report Type: 
  Country: None (occurrence: None)
  Receive Date: 20051222
  Receipt Date: 19991008
  Transmission Date: 20060501
  Serious: Yes (Death, Hospitalization)
  Sender: FDA-Public Use
  Company Number: 8-99056-098A

PATIENT
  Age: 82 Year
  Sex: Male
  Weight: 88.07 kg

DRUGS (2)
  1. MYLOTARG [Suspect]
     Indication: ACUTE MYELOID LEUKAEMIA
     Dosage: 9 MG/M(2)/CYCLE, INTRAVENOUS
     Route: 042
     Dates: start: 19990202, end: 19990202
  2. FLUCONAZOLE [Concomitant]

REACTIONS (7)
  - BACTERAEMIA [None]
  - DYSPHAGIA [None]
  - DYSPNOEA [None]
  - FUNGAEMIA [None]
  - FUNGAL INFECTION [None]
  - MENTAL STATUS CHANGES [None]
  - PYREXIA [None]
